FAERS Safety Report 4923275-9 (Version None)
Quarter: 2006Q1

REPORT INFORMATION
  Report Type: 
  Country: None (occurrence: None)
  Receive Date: 20060227
  Receipt Date: 20041117
  Transmission Date: 20060701
  Serious: Yes (Hospitalization)
  Sender: FDA-Public Use
  Company Number: 2004-11-0308

PATIENT
  Age: 34 Year
  Sex: Female

DRUGS (1)
  1. BUPRENORPHINE HCL [Suspect]
     Indication: DRUG WITHDRAWAL MAINTENANCE THERAPY
     Dosage: DOSAGE UNKNOWN
     Route: 042
     Dates: end: 20000902

REACTIONS (9)
  - ABSCESS [None]
  - ANAEMIA [None]
  - HEADACHE [None]
  - INTENTIONAL DRUG MISUSE [None]
  - KLEBSIELLA INFECTION [None]
  - NAUSEA [None]
  - SEPSIS [None]
  - STAPHYLOCOCCAL INFECTION [None]
  - WALDENSTROM'S MACROGLOBULINAEMIA [None]
